FAERS Safety Report 6522111-7 (Version None)
Quarter: 2009Q4

REPORT INFORMATION
  Report Type: 
  Country: None (occurrence: None)
  Receive Date: 20091229
  Receipt Date: 20091229
  Transmission Date: 20100525
  Serious: No
  Sender: FDA-Public Use
  Company Number: None

PATIENT
  Age: 55 Year
  Sex: Female
  Weight: 76.2 kg

DRUGS (5)
  1. WARFARIN [Suspect]
     Indication: PULMONARY EMBOLISM
     Dosage: VAR. PO
     Route: 048
     Dates: start: 20091017
  2. WARFARIN [Suspect]
     Indication: PULMONARY EMBOLISM
     Dosage: VAR. PO
     Route: 048
     Dates: start: 20091018
  3. WARFARIN [Suspect]
     Indication: PULMONARY EMBOLISM
     Dosage: VAR. PO
     Route: 048
     Dates: start: 20091019
  4. WARFARIN [Suspect]
     Indication: PULMONARY EMBOLISM
     Dosage: VAR. PO
     Route: 048
     Dates: start: 20091021
  5. WARFARIN [Suspect]
     Indication: PULMONARY EMBOLISM
     Dosage: VAR. PO
     Route: 048
     Dates: start: 20091024

REACTIONS (4)
  - BLOOD URINE PRESENT [None]
  - HAEMATOCHEZIA [None]
  - HAEMOGLOBIN DECREASED [None]
  - INTERNATIONAL NORMALISED RATIO INCREASED [None]
